FAERS Safety Report 21437751 (Version 1)
Quarter: 2022Q4

REPORT INFORMATION
  Report Type: Spontaneous
  Country: None (occurrence: US)
  Receive Date: 20221011
  Receipt Date: 20221011
  Transmission Date: 20230112
  Serious: No
  Sender: FDA-Public Use
  Company Number: US-Ajanta Pharma USA Inc.-2133646

PATIENT
  Sex: Female

DRUGS (1)
  1. CHOLESTYRAMINE [Suspect]
     Active Substance: CHOLESTYRAMINE
     Indication: Bile acid malabsorption
     Dates: start: 20220914, end: 20220914

REACTIONS (6)
  - Product taste abnormal [Recovered/Resolved]
  - Off label use [Recovered/Resolved]
  - Product solubility abnormal [Recovered/Resolved]
  - Intentional product misuse [Recovered/Resolved]
  - Product physical consistency issue [Recovered/Resolved]
  - Product substitution issue [Recovered/Resolved]

NARRATIVE: CASE EVENT DATE: 20220914
